FAERS Safety Report 14335913 (Version 5)
Quarter: 2018Q1

REPORT INFORMATION
  Report Type: Report from Study
  Country: CA (occurrence: CA)
  Receive Date: 20171229
  Receipt Date: 20180205
  Transmission Date: 20180509
  Serious: No
  Sender: FDA-Public Use
  Company Number: CA-ROCHE-2048077

PATIENT
  Age: 47 Year
  Sex: Male

DRUGS (1)
  1. OCREVUS [Suspect]
     Active Substance: OCRELIZUMAB
     Indication: RELAPSING-REMITTING MULTIPLE SCLEROSIS
     Dosage: LOADING DOSE 300 MG IV Q 2 WEEKS X 2 DOSES
     Route: 041
     Dates: start: 20171215

REACTIONS (3)
  - Nasopharyngitis [Not Recovered/Not Resolved]
  - Limb discomfort [Not Recovered/Not Resolved]
  - Oropharyngeal pain [Recovered/Resolved]

NARRATIVE: CASE EVENT DATE: 20171217
